FAERS Safety Report 23388226 (Version 1)
Quarter: 2024Q1

REPORT INFORMATION
  Report Type: Spontaneous
  Country: FR (occurrence: FR)
  Receive Date: 20240110
  Receipt Date: 20240110
  Transmission Date: 20240409
  Serious: Yes (Hospitalization, Other)
  Sender: FDA-Public Use
  Company Number: FR-PFIZER INC-PV202400001900

PATIENT
  Sex: Male

DRUGS (5)
  1. OXBRYTA [Suspect]
     Active Substance: VOXELOTOR
     Dosage: 1500 MG, DAILY
     Dates: start: 20220901
  2. OXBRYTA [Suspect]
     Active Substance: VOXELOTOR
     Dosage: 1000 MG, DAILY
     Dates: start: 20221125, end: 20230627
  3. HYDROXYUREA [Concomitant]
     Active Substance: HYDROXYUREA
     Dosage: UNK
  4. SIKLOS [Concomitant]
     Active Substance: HYDROXYUREA
     Dosage: 750 MG, DAILY
     Dates: end: 20230106
  5. SIKLOS [Concomitant]
     Active Substance: HYDROXYUREA
     Dosage: 750 MG, DAILY
     Dates: start: 20230424

REACTIONS (18)
  - Sickle cell anaemia with crisis [Unknown]
  - Acute chest syndrome [Unknown]
  - Disease progression [Unknown]
  - Pain [Unknown]
  - Fatigue [Unknown]
  - Dyspnoea [Unknown]
  - Condition aggravated [Unknown]
  - Priapism [Unknown]
  - Aspartate aminotransferase abnormal [Unknown]
  - Alanine aminotransferase increased [Unknown]
  - Blood bilirubin increased [Unknown]
  - Haematocrit abnormal [Unknown]
  - Blood lactate dehydrogenase abnormal [Unknown]
  - Haemoglobin abnormal [Unknown]
  - Reticulocyte count abnormal [Unknown]
  - Neutrophil count decreased [Recovered/Resolved]
  - Platelet count decreased [Recovered/Resolved]
  - White blood cell count decreased [Recovered/Resolved]

NARRATIVE: CASE EVENT DATE: 20221011
